FAERS Safety Report 7250166-3 (Version None)
Quarter: 2011Q1

REPORT INFORMATION
  Report Type: 
  Country: None (occurrence: None)
  Receive Date: 20110128
  Receipt Date: 20110115
  Transmission Date: 20110831
  Serious: Yes (Hospitalization, Other)
  Sender: FDA-Public Use
  Company Number: US-BAYER-2010-003149

PATIENT
  Sex: Female

DRUGS (3)
  1. INTERFERON BETA-1B [Suspect]
     Dosage: 8 MIU, QOD
     Route: 058
     Dates: start: 20101211
  2. OXYCONTIN [Concomitant]
  3. INTERFERON BETA-1B [Suspect]
     Indication: RELAPSING-REMITTING MULTIPLE SCLEROSIS
     Dosage: 8 MIU, QOD
     Route: 058
     Dates: start: 20070829, end: 20101202

REACTIONS (7)
  - SPINAL DEFORMITY [None]
  - INFLUENZA LIKE ILLNESS [None]
  - INJECTION SITE ERYTHEMA [None]
  - ARTHRITIS [None]
  - CHILLS [None]
  - ARTHROPATHY [None]
  - WHITE BLOOD CELL COUNT DECREASED [None]
